FAERS Safety Report 10849695 (Version 1)
Quarter: 2015Q1

REPORT INFORMATION
  Report Type: Not Available
  Country: US (occurrence: US)
  Receive Date: 20150221
  Receipt Date: 20150221
  Transmission Date: 20150721
  Serious: No
  Sender: FDA-Public Use
  Company Number: US-AMARIN PHARMA, INC.-2013AMR000010

PATIENT
  Age: 58 Year
  Sex: Female
  Weight: 55.9 kg

DRUGS (27)
  1. B 100 COMPLEX [Concomitant]
     Indication: PRODUCT USED FOR UNKNOWN INDICATION
  2. CALCIUM COMPLEX [Concomitant]
     Indication: PRODUCT USED FOR UNKNOWN INDICATION
  3. CORTISONE WITH BROMELAIN [Concomitant]
     Indication: HYPERSENSITIVITY
  4. COMPOUND WITH T3 AND T4 [Concomitant]
     Indication: THYROID THERAPY
  5. FLAXSEED [Concomitant]
     Active Substance: FLAX SEED
     Indication: PRODUCT USED FOR UNKNOWN INDICATION
  6. D3 AND K2 COMBINATION [Concomitant]
     Indication: PRODUCT USED FOR UNKNOWN INDICATION
  7. VASCEPA [Suspect]
     Active Substance: ETHYL ICOSAPENTATE
     Dates: start: 20130330
  8. UBIQUINOL/ COQ10 [Concomitant]
     Indication: PRODUCT USED FOR UNKNOWN INDICATION
  9. MALIC ACID [Concomitant]
     Active Substance: MALIC ACID
     Indication: MEMORY IMPAIRMENT
  10. D3 AND K2 COMBINATION [Concomitant]
     Indication: PRODUCT USED FOR UNKNOWN INDICATION
  11. NATURAL PROGESTERONE [Concomitant]
     Indication: PRODUCT USED FOR UNKNOWN INDICATION
     Route: 061
  12. MALIC ACID [Concomitant]
     Active Substance: MALIC ACID
     Indication: GASTROOESOPHAGEAL REFLUX DISEASE
  13. MALIC ACID [Concomitant]
     Active Substance: MALIC ACID
     Indication: FIBROMYALGIA
  14. VASCEPA [Suspect]
     Active Substance: ETHYL ICOSAPENTATE
     Indication: LOW DENSITY LIPOPROTEIN INCREASED
     Dates: start: 20130227, end: 20130321
  15. PROBIOTIC [Concomitant]
     Active Substance: PROBIOTICS NOS
     Indication: PRODUCT USED FOR UNKNOWN INDICATION
  16. EVENING PRIMROSE OIL [Concomitant]
     Active Substance: EVENING PRIMROSE OIL
     Indication: PRODUCT USED FOR UNKNOWN INDICATION
  17. UBIQUINOL/ COQ10 [Concomitant]
     Indication: PRODUCT USED FOR UNKNOWN INDICATION
  18. BETAINE PEPSIN [Concomitant]
     Indication: GASTROOESOPHAGEAL REFLUX DISEASE
  19. BIOIDENTICAL ZINC [Concomitant]
     Indication: NUTRITIONAL SUPPLEMENTATION
  20. ALLERGY TREATMENT [Concomitant]
     Indication: HYPERSENSITIVITY
     Route: 060
  21. CORTISONE WITH BROMELAIN [Concomitant]
     Indication: HYPERSENSITIVITY
  22. OMNARIS [Concomitant]
     Active Substance: CICLESONIDE
     Indication: HYPERSENSITIVITY
     Route: 045
  23. COMPOUNDED MEDICATION WITH FERROUS GLYCINATE [Concomitant]
     Indication: THYROID THERAPY
  24. BIOIDENTICAL HORMONE REPLACEMENT [Concomitant]
     Indication: PRODUCT USED FOR UNKNOWN INDICATION
     Route: 061
  25. COMPOUND WITH T3 AND T4 [Concomitant]
     Indication: THYROID THERAPY
  26. BIOIDENTICAL ZINC [Concomitant]
     Indication: NUTRITIONAL SUPPLEMENTATION
  27. RESTASIS [Concomitant]
     Active Substance: CYCLOSPORINE
     Indication: DRY EYE
     Dosage: ROUTE:  OCCULAR USE

REACTIONS (7)
  - Abdominal rigidity [Recovering/Resolving]
  - Nausea [Recovered/Resolved]
  - Flatulence [Recovering/Resolving]
  - Irritable bowel syndrome [Recovering/Resolving]
  - Abdominal discomfort [Recovering/Resolving]
  - Abdominal distension [Recovering/Resolving]
  - Gastrointestinal motility disorder [Recovering/Resolving]

NARRATIVE: CASE EVENT DATE: 20130228
